FAERS Safety Report 9483315 (Version 1)
Quarter: 2013Q3

REPORT INFORMATION
  Report Type: Spontaneous
  Country: CA (occurrence: CA)
  Receive Date: 20130828
  Receipt Date: 20130828
  Transmission Date: 20140515
  Serious: Yes (Hospitalization, Other)
  Sender: FDA-Public Use
  Company Number: CA-AMGEN-KDL250051

PATIENT
  Age: 38 Year
  Sex: Male
  Weight: 100 kg

DRUGS (4)
  1. ENBREL [Suspect]
     Indication: PSORIATIC ARTHROPATHY
     Dosage: 50 MG, QWK
     Route: 058
     Dates: start: 20060427
  2. EFALIZUMAB [Concomitant]
     Dosage: UNK UNK, UNK
  3. PANADEINE CO [Concomitant]
     Dosage: UNK UNK, UNK
  4. NAPROXEN [Concomitant]
     Dosage: UNK UNK, UNK

REACTIONS (2)
  - Drug ineffective [Recovering/Resolving]
  - Psoriatic arthropathy [Not Recovered/Not Resolved]
